FAERS Safety Report 5629433-2 (Version None)
Quarter: 2008Q1

REPORT INFORMATION
  Report Type: 
  Country: None (occurrence: None)
  Receive Date: 20080218
  Receipt Date: 20080206
  Transmission Date: 20080703
  Serious: Yes (Hospitalization)
  Sender: FDA-Public Use
  Company Number: JP-NOVOPROD-270647

PATIENT
  Age: 12 Year
  Sex: Male
  Weight: 31 kg

DRUGS (7)
  1. NORDITROPIN NORDIFLEX [Suspect]
     Indication: GROWTH HORMONE DEFICIENCY
     Dosage: .75 MG, QD
     Route: 058
     Dates: start: 20070831, end: 20071208
  2. NORDITROPIN NORDIFLEX [Suspect]
     Indication: LANGERHANS' CELL GRANULOMATOSIS
  3. ALFAROL [Concomitant]
     Indication: OSTEOPOROSIS
     Dosage: .5 UG, QD
     Route: 048
     Dates: start: 20050712
  4. DESMOPRESSIN [Concomitant]
     Indication: DIABETES INSIPIDUS
     Dosage: 10 UG, QD
     Route: 048
     Dates: start: 20010725
  5. EBASTEL [Concomitant]
     Indication: RHINITIS ALLERGIC
     Dosage: 5 MG, QD
     Route: 048
     Dates: start: 20061121
  6. MUCODYNE [Concomitant]
     Indication: CHRONIC SINUSITIS
     Dosage: 600 MG, QD
     Route: 048
     Dates: start: 20001010
  7. ZADITEN                            /00495201/ [Concomitant]
     Indication: CHRONIC SINUSITIS
     Dosage: 1.4 MG, QD
     Route: 048
     Dates: start: 20030121

REACTIONS (2)
  - CONCOMITANT DISEASE AGGRAVATED [None]
  - LANGERHANS' CELL GRANULOMATOSIS [None]
